FAERS Safety Report 14031027 (Version 7)
Quarter: 2018Q1

REPORT INFORMATION
  Report Type: Report from Study
  Country: US (occurrence: US)
  Receive Date: 20171002
  Receipt Date: 20180316
  Transmission Date: 20180508
  Serious: Yes (Death, Hospitalization)
  Sender: FDA-Public Use
  Company Number: US-ROCHE-2000492

PATIENT
  Age: 83 Year
  Sex: Male
  Weight: 89.4 kg

DRUGS (16)
  1. PREDNISONE. [Concomitant]
     Active Substance: PREDNISONE
     Indication: PROSTATE CANCER
     Route: 048
     Dates: start: 20160316
  2. VITAMIN C [Concomitant]
     Active Substance: ASCORBIC ACID
     Dosage: HEALTH MAINTENANCE
     Route: 048
     Dates: start: 20101108
  3. PROBIOTIC FORMULA (BIFIDOBACTERIUM-LACTOBACILLUS) [Concomitant]
     Dosage: DOSE: ND DOSE UNIT: UNKNOWN?HEALTH MAINTENANCE
     Route: 048
     Dates: start: 20131001
  4. LUPRON [Concomitant]
     Active Substance: LEUPROLIDE ACETATE
     Indication: PROSTATE CANCER
     Route: 030
     Dates: start: 20120711
  5. FINACEA [Concomitant]
     Active Substance: AZELAIC ACID
     Indication: ROSACEA
     Route: 061
     Dates: start: 20110411
  6. ELIQUIS [Concomitant]
     Active Substance: APIXABAN
     Indication: ATRIAL FIBRILLATION
     Route: 048
     Dates: start: 20150812
  7. MAGNESIUM OXIDE. [Concomitant]
     Active Substance: MAGNESIUM OXIDE
     Dosage: HEALTH MAINTENANCE
     Route: 048
     Dates: start: 20170116
  8. CARTIA XT [Concomitant]
     Active Substance: DILTIAZEM HYDROCHLORIDE
     Indication: HYPERTENSION
     Route: 048
     Dates: start: 20150812
  9. ATEZOLIZUMAB. [Suspect]
     Active Substance: ATEZOLIZUMAB
     Indication: HORMONE-REFRACTORY PROSTATE CANCER
     Dosage: DATE OF MOST RECENT DOSE PRIOR TO SERIOUS ADVERSE EVENT WAS ON 23/AUG/2017 AT 15:30.
     Route: 042
     Dates: start: 20170419
  10. LISINOPRIL. [Concomitant]
     Active Substance: LISINOPRIL
     Indication: HYPERTENSION
     Route: 048
     Dates: start: 20170116
  11. TRIAMCINOLONE [Concomitant]
     Active Substance: TRIAMCINOLONE
     Indication: ROSACEA
     Route: 061
     Dates: start: 20101108
  12. NOVACORT (UNITED STATES) [Concomitant]
     Indication: ROSACEA
     Dosage: DOSE: 1 DOSE UNIT: OTHER
     Route: 061
     Dates: start: 20170413
  13. RADIUM-223 [Suspect]
     Active Substance: RADIUM RA-223 DICHLORIDE
     Indication: HORMONE-REFRACTORY PROSTATE CANCER
     Dosage: PATIENT STARTED WITH RADIUM- 223 AT 55 KILOBECQUERELS PER KILOGRAM (KBQ/KG).?ON 09/AUG/2017, THE PAT
     Route: 040
     Dates: start: 20170517
  14. SENNA [Concomitant]
     Active Substance: SENNA LEAF\SENNOSIDES\SENNOSIDES A AND B
     Indication: CONSTIPATION
     Route: 048
     Dates: start: 20170116
  15. TYLENOL [Concomitant]
     Active Substance: ACETAMINOPHEN
     Indication: PAIN
     Route: 048
     Dates: start: 20170419
  16. DEXAMETHASONE. [Concomitant]
     Active Substance: DEXAMETHASONE
     Indication: DEEP VEIN THROMBOSIS
     Route: 048
     Dates: start: 20170902

REACTIONS (2)
  - Confusional state [Not Recovered/Not Resolved]
  - Cerebrovascular accident [Fatal]

NARRATIVE: CASE EVENT DATE: 20170926
